FAERS Safety Report 9185847 (Version 2)
Quarter: 2013Q2

REPORT INFORMATION
  Report Type: Spontaneous
  Country: US (occurrence: US)
  Receive Date: 20130325
  Receipt Date: 20130531
  Transmission Date: 20140414
  Serious: No
  Sender: FDA-Public Use
  Company Number: US-009507513-1303USA010123

PATIENT
  Age: 52 Year
  Sex: Female

DRUGS (1)
  1. ASMANEX TWISTHALER [Suspect]
     Indication: ASTHMA
     Dosage: 1 DF, QD, REPORTED AS ONE INHALATION ONCE DAILY
     Route: 048
     Dates: start: 20130307, end: 20130319

REACTIONS (5)
  - Gallbladder disorder [Recovering/Resolving]
  - Joint swelling [Recovered/Resolved]
  - Device malfunction [Unknown]
  - Rash [Recovered/Resolved]
  - Pruritus [Recovering/Resolving]
